FAERS Safety Report 8837235 (Version 2)
Quarter: 2012Q4

REPORT INFORMATION
  Report Type: 
  Country: US (occurrence: US)
  Receive Date: 20121012
  Receipt Date: 20121023
  Transmission Date: 20130627
  Serious: No
  Sender: FDA-Public Use
  Company Number: US-B.I. PHARMACEUTICALS,INC./RIDGEFIELD-2012-BP-23818BP

PATIENT
  Age: 81 Year
  Sex: Female
  Weight: 69 kg

DRUGS (5)
  1. SPIRIVA [Suspect]
     Indication: BRONCHITIS CHRONIC
     Dosage: 18 mcg
     Route: 055
     Dates: start: 2009
  2. ALBUTEROL [Concomitant]
     Indication: BRONCHITIS CHRONIC
     Dosage: 5 mg
     Route: 055
     Dates: start: 2011
  3. XOPENEX [Concomitant]
     Indication: ASTHMA
     Route: 055
     Dates: start: 2006
  4. SYMBICORT [Concomitant]
     Indication: ASTHMA
     Dosage: 4 puf
     Route: 055
     Dates: start: 2011
  5. LASIX [Concomitant]
     Indication: CARDIAC FAILURE CONGESTIVE
     Dosage: 20 mg
     Route: 048
     Dates: start: 201112

REACTIONS (6)
  - Cough [Not Recovered/Not Resolved]
  - Increased upper airway secretion [Not Recovered/Not Resolved]
  - Decreased appetite [Not Recovered/Not Resolved]
  - Fatigue [Not Recovered/Not Resolved]
  - Product quality issue [Recovered/Resolved]
  - Product quality issue [Recovered/Resolved]
